FAERS Safety Report 15937103 (Version 1)
Quarter: 2019Q1

REPORT INFORMATION
  Report Type: Spontaneous
  Country: US (occurrence: US)
  Receive Date: 20190117
  Receipt Date: 20190117
  Transmission Date: 20190417
  Serious: Yes (Hospitalization)
  Sender: FDA-Public Use
  Company Number: None

PATIENT
  Age: 82 Year
  Sex: Female
  Weight: 81.8 kg

DRUGS (1)
  1. ARIMIDEX [Suspect]
     Active Substance: ANASTROZOLE
     Dates: end: 20190101

REACTIONS (4)
  - Dizziness [None]
  - Blood pressure decreased [None]
  - Atrial fibrillation [None]
  - Malaise [None]

NARRATIVE: CASE EVENT DATE: 20190110
